FAERS Safety Report 9030446 (Version 1)
Quarter: 2013Q1

REPORT INFORMATION
  Report Type: Spontaneous
  Country: US (occurrence: US)
  Receive Date: 20130122
  Receipt Date: 20130122
  Transmission Date: 20140127
  Serious: Yes (Other)
  Sender: FDA-Public Use
  Company Number: US-ASTRAZENECA-2013SE04040

PATIENT
  Sex: Female

DRUGS (1)
  1. PRILOSEC OTC [Suspect]
     Route: 048

REACTIONS (4)
  - Weight decreased [Unknown]
  - Decreased appetite [Unknown]
  - Abdominal pain upper [Recovered/Resolved]
  - Nausea [Recovered/Resolved]
